FAERS Safety Report 11312995 (Version 1)
Quarter: 2015Q3

REPORT INFORMATION
  Report Type: Spontaneous
  Country: US (occurrence: US)
  Receive Date: 20150727
  Receipt Date: 20150727
  Transmission Date: 20151125
  Serious: No
  Sender: FDA-Public Use
  Company Number: US-ABBVIE-15P-163-1397045-00

PATIENT
  Age: 36 Year
  Sex: Female

DRUGS (2)
  1. ARMOUR [Concomitant]
     Indication: PRODUCT USED FOR UNKNOWN INDICATION
  2. SYNTHROID [Suspect]
     Active Substance: LEVOTHYROXINE SODIUM
     Indication: PRODUCT USED FOR UNKNOWN INDICATION
     Route: 065

REACTIONS (18)
  - Drug ineffective [Unknown]
  - Exposure during pregnancy [Unknown]
  - Somnolence [Unknown]
  - Acne [Unknown]
  - Pyrexia [Unknown]
  - Nervous system disorder [Unknown]
  - Psoriasis [Unknown]
  - Visual acuity reduced [Unknown]
  - Pre-eclampsia [Unknown]
  - Skin lesion [Unknown]
  - Mobility decreased [Unknown]
  - Pain [Unknown]
  - Gestational diabetes [Unknown]
  - Weight increased [Unknown]
  - Plantar fasciitis [Unknown]
  - Insomnia [Unknown]
  - Heart rate abnormal [Unknown]
  - Alopecia [Unknown]
